FAERS Safety Report 5040582-2 (Version None)
Quarter: 2006Q2

REPORT INFORMATION
  Report Type: 
  Country: None (occurrence: None)
  Receive Date: 20060630
  Receipt Date: 20060623
  Transmission Date: 20061013
  Serious: Yes (Hospitalization)
  Sender: FDA-Public Use
  Company Number: US-JNJFOC-20060605198

PATIENT
  Sex: Female
  Weight: 178.26 kg

DRUGS (2)
  1. ORTHO EVRA [Suspect]
     Indication: CONTRACEPTION
     Route: 062
  2. AMOXICILLIN [Concomitant]
     Indication: DRUG USE FOR UNKNOWN INDICATION

REACTIONS (12)
  - CARDIAC DISORDER [None]
  - CHEST PAIN [None]
  - FIBRIN D DIMER INCREASED [None]
  - HYPERTENSION [None]
  - HYPOAESTHESIA [None]
  - MITRAL VALVE SCLEROSIS [None]
  - PARAESTHESIA [None]
  - PULMONARY EMBOLISM [None]
  - PULMONARY INFARCTION [None]
  - SLEEP APNOEA SYNDROME [None]
  - TACHYCARDIA [None]
  - VENTRICULAR HYPERTROPHY [None]
